FAERS Safety Report 4302216-1 (Version None)
Quarter: 2004Q1

REPORT INFORMATION
  Report Type: 
  Country: None (occurrence: None)
  Receive Date: 20040220
  Receipt Date: 20040210
  Transmission Date: 20041129
  Serious: Yes (Hospitalization)
  Sender: FDA-Public Use
  Company Number: 2001076954IT

PATIENT
  Age: 65 Year
  Sex: Female

DRUGS (4)
  1. CAMPTOSAR [Suspect]
     Indication: COLON CANCER
     Dosage: 225 MG, CYCLE 4, IV
     Route: 042
     Dates: start: 20010820, end: 20010820
  2. FLUOROURACIL [Suspect]
     Indication: COLON CANCER
     Dosage: SEE IMAGE
     Route: 040
     Dates: start: 20010820, end: 20010820
  3. FLUOROURACIL [Suspect]
     Indication: COLON CANCER
     Dosage: SEE IMAGE
     Route: 040
     Dates: start: 20010820, end: 20010821
  4. LEUCOVORIN CALCIUM [Suspect]
     Indication: COLON CANCER
     Dosage: 340 MG, CYCLE 4, IV
     Route: 042
     Dates: start: 20010820, end: 20010821

REACTIONS (2)
  - CATHETER RELATED INFECTION [None]
  - SEPSIS [None]
